FAERS Safety Report 13786059 (Version 3)
Quarter: 2018Q3

REPORT INFORMATION
  Report Type: Spontaneous
  Country: DK (occurrence: DK)
  Receive Date: 20170725
  Receipt Date: 20180813
  Transmission Date: 20181010
  Serious: Yes (Hospitalization)
  Sender: FDA-Public Use
  Company Number: DK-009507513-1707DNK009635

PATIENT
  Age: 67 Year
  Sex: Male

DRUGS (19)
  1. CARBOPLATIN. [Concomitant]
     Active Substance: CARBOPLATIN
     Dosage: 350 MG, UNK
     Route: 042
     Dates: start: 20180503
  2. CALCIUM (UNSPECIFIED) (+) VITAMIN D (UNSPECIFIED) [Concomitant]
     Active Substance: CALCIUM CARBONATE\VITAMIN D
     Indication: MINERAL SUPPLEMENTATION
     Dosage: 400 MG + 19 ?G.
     Route: 048
     Dates: start: 20170807
  3. KEYTRUDA [Suspect]
     Active Substance: PEMBROLIZUMAB
     Indication: NON-SMALL CELL LUNG CANCER
     Dosage: 130 MG, Q3W
     Route: 042
     Dates: start: 20170213, end: 20170213
  4. KEYTRUDA [Suspect]
     Active Substance: PEMBROLIZUMAB
     Dosage: 130 MG, Q3W
     Route: 042
     Dates: start: 20170504, end: 20170504
  5. KEYTRUDA [Suspect]
     Active Substance: PEMBROLIZUMAB
     Dosage: 130 MG, Q3W
     Route: 042
     Dates: start: 20170607, end: 20170719
  6. METOPROLOL. [Concomitant]
     Active Substance: METOPROLOL
     Indication: THROMBOSIS PROPHYLAXIS
     Dosage: STYRKE: 25 MG.
     Route: 048
     Dates: start: 20141116
  7. PREDNISOLONE. [Concomitant]
     Active Substance: PREDNISOLONE
     Indication: ADRENOCORTICAL STEROID THERAPY
     Dosage: UNK
     Route: 048
     Dates: start: 20170807
  8. ATORVASTATIN [Concomitant]
     Active Substance: ATORVASTATIN
     Indication: HYPERCHOLESTEROLAEMIA
     Dosage: 80 MG
     Route: 048
     Dates: start: 20141114
  9. KEYTRUDA [Suspect]
     Active Substance: PEMBROLIZUMAB
     Dosage: 130 MG, Q3W
     Route: 042
     Dates: start: 20170420, end: 20170420
  10. KEYTRUDA [Suspect]
     Active Substance: PEMBROLIZUMAB
     Dosage: 130 MG, Q3W
     Route: 042
     Dates: start: 20170516, end: 20170516
  11. CARBOPLATIN. [Concomitant]
     Active Substance: CARBOPLATIN
     Indication: LUNG NEOPLASM MALIGNANT
     Dosage: 381 MG, UNK
     Route: 042
     Dates: start: 20180412
  12. KEYTRUDA [Suspect]
     Active Substance: PEMBROLIZUMAB
     Dosage: 130 MG, Q3W
     Route: 042
     Dates: start: 20170331, end: 20170331
  13. CARBOPLATIN. [Concomitant]
     Active Substance: CARBOPLATIN
     Dosage: 270 MG, UNK
     Route: 042
     Dates: start: 20180618
  14. DOMPERIDONE [Concomitant]
     Active Substance: DOMPERIDONE
     Indication: PROPHYLAXIS OF NAUSEA AND VOMITING
     Dosage: 10 MG, 1 TABLET
     Dates: start: 20180412
  15. HJERTEMAGNYL (ASPIRIN) [Concomitant]
     Indication: THROMBOSIS PROPHYLAXIS
     Dosage: 75 MG, QD.
     Route: 048
     Dates: start: 20090629
  16. VINORELBINE TARTRATE. [Concomitant]
     Active Substance: VINORELBINE TARTRATE
     Indication: LUNG NEOPLASM MALIGNANT
     Dosage: UNK
     Dates: start: 20180412
  17. PANTOPRAZOLE [Concomitant]
     Active Substance: PANTOPRAZOLE
     Indication: GASTROOESOPHAGEAL REFLUX DISEASE
     Dosage: 40 MG,QD
     Route: 048
     Dates: start: 20170717
  18. KEYTRUDA [Suspect]
     Active Substance: PEMBROLIZUMAB
     Dosage: 130 MG, Q3W
     Route: 042
     Dates: start: 20170306, end: 20170306
  19. ZOPICLONE [Concomitant]
     Active Substance: ZOPICLONE
     Indication: INSOMNIA
     Dosage: 1/2 ? 1 TABLET
     Route: 048
     Dates: start: 20170223

REACTIONS (6)
  - Duodenitis [Not Recovered/Not Resolved]
  - Duodenal ulcer [Not Recovered/Not Resolved]
  - Vomiting [Unknown]
  - Cortisol deficiency [Unknown]
  - Weight decreased [Unknown]
  - Food aversion [Unknown]

NARRATIVE: CASE EVENT DATE: 201705
